FAERS Safety Report 6282742-9 (Version None)
Quarter: 2009Q3

REPORT INFORMATION
  Report Type: 
  Country: None (occurrence: None)
  Receive Date: 20090724
  Receipt Date: 20090529
  Transmission Date: 20100115
  Serious: Yes (Other)
  Sender: FDA-Public Use
  Company Number: IN-JNJFOC-20090706832

PATIENT
  Age: 50 Year
  Sex: Male

DRUGS (2)
  1. ITRACONAZOLE [Suspect]
     Indication: FUNGAL INFECTION
     Route: 048
  2. NATAMYCIN [Suspect]
     Indication: FUNGAL INFECTION
     Route: 061

REACTIONS (2)
  - DRUG INEFFECTIVE [None]
  - ENDOPHTHALMITIS [None]
